FAERS Safety Report 9738419 (Version 1)
Quarter: 2013Q4

REPORT INFORMATION
  Report Type: Report from Study
  Country: ZA (occurrence: ZA)
  Receive Date: 20131208
  Receipt Date: 20131208
  Transmission Date: 20140711
  Serious: Yes (Death)
  Sender: FDA-Public Use
  Company Number: ZA-ROCHE-1315815

PATIENT
  Age: 40 Year
  Sex: Female

DRUGS (5)
  1. MIRCERA [Suspect]
     Indication: NEPHROGENIC ANAEMIA
     Route: 058
     Dates: start: 201012
  2. MIRCERA [Suspect]
     Route: 058
     Dates: start: 201108
  3. MIRCERA [Suspect]
     Route: 058
     Dates: start: 201210
  4. MIRCERA [Suspect]
     Route: 058
     Dates: start: 201306, end: 201310
  5. ONE-ALPHA [Concomitant]
     Route: 065

REACTIONS (1)
  - Death [Fatal]
